FAERS Safety Report 7816516-1 (Version None)
Quarter: 2011Q4

REPORT INFORMATION
  Report Type: 
  Country: None (occurrence: None)
  Receive Date: 20111017
  Receipt Date: 20111006
  Transmission Date: 20120403
  Serious: Yes (Other)
  Sender: FDA-Public Use
  Company Number: KR-JNJFOC-20110912152

PATIENT
  Sex: Female

DRUGS (3)
  1. UNKNOWN MEDICATION [Suspect]
     Indication: PRODUCT USED FOR UNKNOWN INDICATION
  2. CONCERTA [Suspect]
     Indication: DISTURBANCE IN ATTENTION
     Route: 048
     Dates: end: 20110922
  3. CONCERTA [Suspect]
     Route: 048
     Dates: start: 20110601

REACTIONS (8)
  - PSYCHOTIC DISORDER [None]
  - DYSPNOEA [None]
  - DIET REFUSAL [None]
  - NAUSEA [None]
  - HYPERHIDROSIS [None]
  - CHEST DISCOMFORT [None]
  - WEIGHT DECREASED [None]
  - FATIGUE [None]
